FAERS Safety Report 16795500 (Version 2)
Quarter: 2019Q4

REPORT INFORMATION
  Report Type: Spontaneous
  Country: JP (occurrence: JP)
  Receive Date: 20190911
  Receipt Date: 20191004
  Transmission Date: 20200122
  Serious: Yes (Death, Other)
  Sender: FDA-Public Use
  Company Number: JP-PFIZER INC-2019383639

PATIENT
  Age: 81 Year
  Sex: Female

DRUGS (9)
  1. MONTELUKAST SODIUM. [Concomitant]
     Active Substance: MONTELUKAST SODIUM
     Dosage: UNK
     Route: 048
  2. VANCOMYCIN [Concomitant]
     Active Substance: VANCOMYCIN
     Indication: STAPHYLOCOCCAL INFECTION
     Dosage: 2 G, 1X/DAY
     Route: 042
     Dates: start: 20160130, end: 20160131
  3. CRAVIT [Concomitant]
     Active Substance: LEVOFLOXACIN
     Dosage: 500 MG, 1X/DAY
     Route: 042
     Dates: start: 20160129, end: 20160131
  4. NOR-ADRENALIN [NOREPINEPHRINE BITARTRATE] [Concomitant]
     Dosage: 1 MG, 1X/DAY
     Route: 042
     Dates: start: 20160129, end: 20160131
  5. UNASYN [Suspect]
     Active Substance: AMPICILLIN SODIUM\SULBACTAM SODIUM
     Dosage: 3 G, 2X/DAY
     Route: 042
     Dates: start: 20160129, end: 20160131
  6. RABEPRAZOLE SODIUM. [Concomitant]
     Active Substance: RABEPRAZOLE SODIUM
     Dosage: UNK
     Route: 048
  7. FLUOROMETHOLONE. [Concomitant]
     Active Substance: FLUOROMETHOLONE
     Dosage: UNK
     Route: 048
  8. AMLODIPINE BESILATE [Concomitant]
     Active Substance: AMLODIPINE BESYLATE
     Dosage: UNK
     Route: 048
  9. RAPIACTA [Concomitant]
     Active Substance: PERAMIVIR
     Dosage: 300 MG, 1X/DAY
     Route: 042
     Dates: start: 20160129, end: 20160130

REACTIONS (3)
  - Staphylococcal infection [Fatal]
  - Pneumonia [Fatal]
  - Dyspnoea [Fatal]

NARRATIVE: CASE EVENT DATE: 201601
